FAERS Safety Report 8547762-X (Version None)
Quarter: 2012Q3

REPORT INFORMATION
  Report Type: 
  Country: None (occurrence: None)
  Receive Date: 20120727
  Receipt Date: 20111220
  Transmission Date: 20120928
  Serious: Yes (Hospitalization)
  Sender: FDA-Public Use
  Company Number: US-ASTRAZENECA-2011SE77351

PATIENT
  Age: 26 Year
  Sex: Male

DRUGS (4)
  1. SEROQUEL [Suspect]
     Route: 048
  2. CELEXA [Suspect]
  3. SEROQUEL [Suspect]
     Indication: DEPRESSION
     Route: 048
  4. ABILIFY [Concomitant]

REACTIONS (8)
  - AFFECT LABILITY [None]
  - BRADYPHRENIA [None]
  - FEAR [None]
  - FATIGUE [None]
  - SUICIDAL IDEATION [None]
  - SLUGGISHNESS [None]
  - MALAISE [None]
  - FEELING ABNORMAL [None]
